FAERS Safety Report 6740899-7 (Version None)
Quarter: 2010Q2

REPORT INFORMATION
  Report Type: 
  Country: None (occurrence: None)
  Receive Date: 20100526
  Receipt Date: 20100517
  Transmission Date: 20101027
  Serious: No
  Sender: FDA-Public Use
  Company Number: US-BIOGENIDEC-2010BI016635

PATIENT
  Age: 45 Year
  Sex: Female

DRUGS (2)
  1. TYSABRI [Suspect]
     Indication: MULTIPLE SCLEROSIS
     Route: 042
     Dates: start: 20050113, end: 20050201
  2. TYSABRI [Suspect]
     Route: 042
     Dates: start: 20070611

REACTIONS (5)
  - CRYING [None]
  - EMOTIONAL DISORDER [None]
  - FALL [None]
  - FATIGUE [None]
  - MULTIPLE SCLEROSIS [None]
